FAERS Safety Report 6828398-5 (Version None)
Quarter: 2010Q3

REPORT INFORMATION
  Report Type: 
  Country: None (occurrence: None)
  Receive Date: 20100709
  Receipt Date: 20070208
  Transmission Date: 20110219
  Serious: No
  Sender: FDA-Public Use
  Company Number: US-PFIZER INC-2007011089

PATIENT
  Age: 61 Year
  Sex: Female
  Weight: 56.7 kg

DRUGS (3)
  1. CHANTIX [Suspect]
     Indication: SMOKING CESSATION THERAPY
  2. CARDIOVASCULAR SYSTEM DRUGS [Concomitant]
     Indication: HYPERTENSION
     Route: 048
  3. CHOLESTEROL- AND TRIGLYCERIDE REDUCERS [Concomitant]
     Indication: BLOOD CHOLESTEROL INCREASED
     Route: 048

REACTIONS (2)
  - NAUSEA [None]
  - VOMITING [None]
